FAERS Safety Report 6894619-6 (Version None)
Quarter: 2010Q3

REPORT INFORMATION
  Report Type: 
  Country: None (occurrence: None)
  Receive Date: 20100802
  Receipt Date: 20100721
  Transmission Date: 20110219
  Serious: Yes (Other)
  Sender: FDA-Public Use
  Company Number: PHFR2010GB01394

PATIENT
  Sex: Male

DRUGS (4)
  1. CLOZARIL [Suspect]
     Indication: SCHIZOPHRENIA
     Dosage: 300 MG NOCTE
     Route: 048
     Dates: start: 20090902
  2. VENLAFAXINE [Concomitant]
     Indication: DEPRESSION
     Dosage: 45 MG, BID
     Route: 048
  3. MIRTAZAPINE [Concomitant]
     Indication: DEPRESSION
     Dosage: 45 MG NOCTE
     Route: 048
  4. VALPROATE SODIUM [Concomitant]
     Indication: CONVULSION

REACTIONS (1)
  - BIPOLAR DISORDER [None]
